FAERS Safety Report 15766728 (Version 1)
Quarter: 2018Q4

REPORT INFORMATION
  Report Type: Spontaneous
  Country: GB (occurrence: GB)
  Receive Date: 20181227
  Receipt Date: 20181227
  Transmission Date: 20190205
  Serious: Yes (Disabling)
  Sender: FDA-Public Use
  Company Number: GB-SAKK-2018SA390259AA

PATIENT
  Age: 58 Year
  Sex: Male
  Weight: 79 kg

DRUGS (4)
  1. NOVORAPID [Concomitant]
     Active Substance: INSULIN ASPART
     Dosage: UNKNOWN
     Route: 065
     Dates: start: 20180629
  2. LEVEMIR [Concomitant]
     Active Substance: INSULIN DETEMIR
     Dosage: UNKNOWN
     Route: 065
     Dates: start: 20181129
  3. ATORVASTATIN [Concomitant]
     Active Substance: ATORVASTATIN
     Dosage: 1 DF, QD
     Route: 065
     Dates: start: 20180803
  4. INSULIN GLARGINE [Suspect]
     Active Substance: INSULIN GLARGINE
     Indication: DIABETES MELLITUS
     Dosage: 100UNITS/ML
     Route: 051
     Dates: start: 20180626

REACTIONS (1)
  - Pain in extremity [Recovering/Resolving]

NARRATIVE: CASE EVENT DATE: 20181203
